FAERS Safety Report 4821358-5 (Version None)
Quarter: 2005Q4

REPORT INFORMATION
  Report Type: 
  Country: None (occurrence: None)
  Receive Date: 20051107
  Receipt Date: 20051006
  Transmission Date: 20060501
  Serious: No
  Sender: FDA-Public Use
  Company Number: US-GLAXOSMITHKLINE-A0577370A

PATIENT
  Age: 52 Year
  Sex: Female
  Weight: 109.1 kg

DRUGS (4)
  1. AVANDAMET [Suspect]
     Dosage: 2TAB TWICE PER DAY
     Route: 048
     Dates: end: 20050901
  2. ZANTAC [Concomitant]
  3. SPIRONOLACTONE [Concomitant]
  4. ACYCLOVIR [Concomitant]

REACTIONS (1)
  - OEDEMA PERIPHERAL [None]
